FAERS Safety Report 8718866 (Version 3)
Quarter: 2012Q4

REPORT INFORMATION
  Report Type: 
  Country: US (occurrence: US)
  Receive Date: 20120810
  Receipt Date: 20121101
  Transmission Date: 20130627
  Serious: No
  Sender: FDA-Public Use
  Company Number: CHPA2012US017500

PATIENT
  Age: 79 Year
  Sex: Female

DRUGS (2)
  1. BENEFIBER W/ WHEAT DEXTRIN [Suspect]
     Indication: CONSTIPATION
     Dosage: 1 TBSP, once daily
     Route: 048
     Dates: start: 2002
  2. MULTIVITAMINS [Concomitant]
     Dosage: UNK, UNK

REACTIONS (3)
  - Therapeutic response unexpected [Unknown]
  - Off label use [Unknown]
  - Incorrect dose administered [Unknown]
